FAERS Safety Report 9142660 (Version 1)
Quarter: 2013Q1

REPORT INFORMATION
  Report Type: Spontaneous
  Country: US (occurrence: US)
  Receive Date: 20130306
  Receipt Date: 20130306
  Transmission Date: 20140127
  Serious: Yes (Other)
  Sender: FDA-Public Use
  Company Number: US-MYLANLABS-2013S1002185

PATIENT
  Age: 88 Year
  Sex: Female

DRUGS (4)
  1. CITALOPRAM [Suspect]
  2. ASPIRIN [Concomitant]
  3. PLAVIX [Concomitant]
  4. HYDROCODONE [Concomitant]

REACTIONS (3)
  - Upper limb fracture [Not Recovered/Not Resolved]
  - Fall [Not Recovered/Not Resolved]
  - Aggression [Not Recovered/Not Resolved]
